FAERS Safety Report 13618565 (Version 1)
Quarter: 2017Q2

REPORT INFORMATION
  Report Type: Report from Study
  Country: GB (occurrence: GB)
  Receive Date: 20170606
  Receipt Date: 20170606
  Transmission Date: 20170830
  Serious: Yes (Death, Hospitalization, Other)
  Sender: FDA-Public Use
  Company Number: GB-JNJFOC-20040305564

PATIENT

DRUGS (3)
  1. CYCLOPHOSPHAMIDE. [Suspect]
     Active Substance: CYCLOPHOSPHAMIDE
     Indication: ANTI-NEUTROPHIL CYTOPLASMIC ANTIBODY POSITIVE VASCULITIS
     Route: 048
  2. PREDNISOLONE. [Concomitant]
     Active Substance: PREDNISOLONE
     Route: 065
  3. INFLIXIMAB [Suspect]
     Active Substance: INFLIXIMAB
     Indication: ANTI-NEUTROPHIL CYTOPLASMIC ANTIBODY POSITIVE VASCULITIS
     Route: 042

REACTIONS (19)
  - Pulmonary haemorrhage [Fatal]
  - Leukopenia [Fatal]
  - Infected skin ulcer [Unknown]
  - Escherichia urinary tract infection [Unknown]
  - Drug ineffective for unapproved indication [Unknown]
  - Abscess [Unknown]
  - Staphylococcal infection [Unknown]
  - Axillary vein thrombosis [Unknown]
  - Pulmonary embolism [Unknown]
  - Klebsiella infection [Unknown]
  - Pneumonia [Fatal]
  - Pneumonia haemophilus [Unknown]
  - B-cell lymphoma [Recovering/Resolving]
  - Product use in unapproved indication [Unknown]
  - Endophthalmitis [Unknown]
  - Diarrhoea [Unknown]
  - Nocardiosis [Unknown]
  - Klebsiella sepsis [Unknown]
  - Off label use [Unknown]
